FAERS Safety Report 5904469-2 (Version None)
Quarter: 2008Q3

REPORT INFORMATION
  Report Type: 
  Country: None (occurrence: None)
  Receive Date: 20080930
  Receipt Date: 20080930
  Transmission Date: 20090109
  Serious: Yes (Hospitalization)
  Sender: FDA-Public Use
  Company Number: None

PATIENT
  Sex: Female
  Weight: 65.6 kg

DRUGS (3)
  1. BEVACIZUMAB (RHUMAB VEGF) [Suspect]
     Dosage: 1109 MG
     Dates: end: 20080818
  2. CARBOPLATIN [Suspect]
     Dosage: 709 MG
     Dates: end: 20080818
  3. TAXOL [Suspect]
     Dosage: 315 MG
     Dates: end: 20080818

REACTIONS (10)
  - ANAEMIA [None]
  - ANASTOMOTIC LEAK [None]
  - DIARRHOEA [None]
  - ELECTROLYTE IMBALANCE [None]
  - HYPOPHAGIA [None]
  - INTESTINAL PERFORATION [None]
  - NAUSEA [None]
  - PELVIC FLUID COLLECTION [None]
  - STAPHYLOCOCCAL INFECTION [None]
  - VOMITING [None]
